FAERS Safety Report 4360332-2 (Version None)
Quarter: 2004Q2

REPORT INFORMATION
  Report Type: 
  Country: None (occurrence: None)
  Receive Date: 20040517
  Receipt Date: 20030408
  Transmission Date: 20050107
  Serious: Yes (Other)
  Sender: FDA-Public Use
  Company Number: C03-C-029

PATIENT
  Age: 50 Year
  Sex: Male

DRUGS (1)
  1. LITHIUM CARBONATE CAPSULES, USP 300 MG [Suspect]
     Indication: BIPOLAR I DISORDER
     Dates: start: 20030308, end: 20030408

REACTIONS (1)
  - UNEVALUABLE EVENT [None]
